FAERS Safety Report 5637848-1 (Version None)
Quarter: 2008Q1

REPORT INFORMATION
  Report Type: 
  Country: None (occurrence: None)
  Receive Date: 20080220
  Receipt Date: 20080211
  Transmission Date: 20080703
  Serious: Yes (Hospitalization)
  Sender: FDA-Public Use
  Company Number: 2007US000557

PATIENT
  Age: 41 Year
  Sex: Male

DRUGS (14)
  1. PROGRAF [Suspect]
     Indication: LIVER TRANSPLANT
     Dosage: 2.5 MG, BID, ORAL; 2 MG, BID, ORAL
     Route: 048
     Dates: start: 20070201, end: 20070307
  2. PROGRAF [Suspect]
     Indication: LIVER TRANSPLANT
     Dosage: 2.5 MG, BID, ORAL; 2 MG, BID, ORAL
     Route: 048
     Dates: start: 20070308
  3. MYCOPHENOLATE MOFETIL [Suspect]
     Indication: LIVER TRANSPLANT
     Dosage: 1 G, BID, ORAL; 1 G, BID,
     Route: 048
     Dates: start: 20070201, end: 20070301
  4. MYCOPHENOLATE MOFETIL [Suspect]
     Indication: LIVER TRANSPLANT
     Dosage: 1 G, BID, ORAL; 1 G, BID,
     Route: 048
     Dates: start: 20070303, end: 20070501
  5. PREDNISONE TAB [Suspect]
     Indication: LIVER TRANSPLANT
     Dosage: 10 MG, UID/QD, ORAL
     Route: 048
     Dates: start: 20070201
  6. NOVOLOG [Concomitant]
  7. LANTUS [Concomitant]
  8. ZOLOFT [Concomitant]
  9. SEPTRA [Concomitant]
  10. VALGANCICLOVIR HCL [Concomitant]
  11. ASPIRIN [Concomitant]
  12. CLOTRIMAZOLE [Concomitant]
  13. BACTRIM DS [Concomitant]
  14. URSODIOL (URSODEOXYCHOLIC ACID) [Concomitant]

REACTIONS (3)
  - DIVERTICULITIS [None]
  - DIVERTICULUM INTESTINAL [None]
  - DYSURIA [None]
